FAERS Safety Report 12908012 (Version 1)
Quarter: 2016Q4

REPORT INFORMATION
  Report Type: Spontaneous
  Country: GB (occurrence: GB)
  Receive Date: 20161103
  Receipt Date: 20161103
  Transmission Date: 20170207
  Serious: Yes (Life-Threatening)
  Sender: FDA-Public Use
  Company Number: GB-COL_24931_2016

PATIENT
  Age: 64 Year
  Sex: Male

DRUGS (1)
  1. HYDROGEN PEROXIDE. [Suspect]
     Active Substance: HYDROGEN PEROXIDE
     Indication: PSOAS ABSCESS
     Dosage: NI/NI/

REACTIONS (3)
  - Drug administration error [Unknown]
  - End-tidal CO2 abnormal [Recovered/Resolved]
  - Oxygen saturation decreased [Recovered/Resolved]

NARRATIVE: CASE EVENT DATE: 20160706
